FAERS Safety Report 7232403-4 (Version None)
Quarter: 2011Q1

REPORT INFORMATION
  Report Type: 
  Country: None (occurrence: None)
  Receive Date: 20110107
  Receipt Date: 20101225
  Transmission Date: 20110831
  Serious: Yes (Life-Threatening, Hospitalization)
  Sender: FDA-Public Use
  Company Number: 012509

PATIENT
  Age: 80 Year
  Sex: Male
  Weight: 54 kg

DRUGS (4)
  1. PIRACETAM (PIRACETAM) [Concomitant]
  2. ASPIRIN [Suspect]
     Dosage: 100 MG, QD, ORAL
     Route: 048
  3. PLETAL [Suspect]
     Indication: INTERMITTENT CLAUDICATION
     Dosage: 100 MG, BID, ORAL
     Route: 048
     Dates: start: 20101007, end: 20101118
  4. TAMSUILOSIN (TAMSULOSIN) [Concomitant]

REACTIONS (2)
  - UPPER GASTROINTESTINAL HAEMORRHAGE [None]
  - ACUTE MYOCARDIAL INFARCTION [None]
